FAERS Safety Report 15522851 (Version 1)
Quarter: 2018Q4

REPORT INFORMATION
  Report Type: Spontaneous
  Country: US (occurrence: US)
  Receive Date: 20181017
  Receipt Date: 20181017
  Transmission Date: 20190205
  Serious: Yes (Hospitalization, Other)
  Sender: FDA-Public Use
  Company Number: US-GLAXOSMITHKLINE-US2018187573

PATIENT
  Sex: Female

DRUGS (2)
  1. LYRICA [Suspect]
     Active Substance: PREGABALIN
     Indication: PRODUCT USED FOR UNKNOWN INDICATION
     Route: 065
  2. VENTOLIN HFA [Suspect]
     Active Substance: ALBUTEROL SULFATE
     Indication: PRODUCT USED FOR UNKNOWN INDICATION
     Dosage: 1 PUFF(S), BID
     Route: 055
     Dates: start: 2018

REACTIONS (11)
  - Joint injury [Unknown]
  - Pyrexia [Unknown]
  - Fall [Unknown]
  - Hallucination [Unknown]
  - Pericardial drainage [Unknown]
  - Loss of consciousness [Unknown]
  - Dehydration [Unknown]
  - Cardiac failure [Unknown]
  - Abdominal pain [Unknown]
  - Pancreatic disorder [Unknown]
  - Pericardial effusion [Unknown]
